FAERS Safety Report 6695998-5 (Version None)
Quarter: 2010Q2

REPORT INFORMATION
  Report Type: 
  Country: None (occurrence: None)
  Receive Date: 20100426
  Receipt Date: 20100413
  Transmission Date: 20101027
  Serious: Yes (Other)
  Sender: FDA-Public Use
  Company Number: PHHY2010FR23372

PATIENT
  Age: 34 Year
  Sex: Female
  Weight: 128 kg

DRUGS (2)
  1. TRILEPTAL [Suspect]
     Indication: EPILEPSY
     Dosage: 600 MG, UNK
  2. ALDOMET [Concomitant]
     Indication: HYPERTENSION

REACTIONS (5)
  - BODY MASS INDEX INCREASED [None]
  - CAESAREAN SECTION [None]
  - DRUG EXPOSURE DURING PREGNANCY [None]
  - RUBELLA IN PREGNANCY [None]
  - TOXOPLASMOSIS [None]
